FAERS Safety Report 14861858 (Version 2)
Quarter: 2018Q3

REPORT INFORMATION
  Report Type: Spontaneous
  Country: AR (occurrence: AR)
  Receive Date: 20180508
  Receipt Date: 20180713
  Transmission Date: 20181010
  Serious: Yes (Other)
  Sender: FDA-Public Use
  Company Number: AR-BAYER-2018-081437

PATIENT
  Sex: Female

DRUGS (1)
  1. BLUSIRI [Suspect]
     Active Substance: LEVONORGESTREL
     Dosage: UNK
     Dates: start: 201712, end: 20180614

REACTIONS (10)
  - Viral infection [Recovered/Resolved]
  - Headache [Recovered/Resolved]
  - Somnolence [Not Recovered/Not Resolved]
  - Febrile infection [Recovered/Resolved]
  - Headache [Recovered/Resolved]
  - Adverse event [Not Recovered/Not Resolved]
  - Pyrexia [Recovered/Resolved]
  - Depressed mood [Unknown]
  - Quality of life decreased [None]
  - Abnormal dreams [Not Recovered/Not Resolved]

NARRATIVE: CASE EVENT DATE: 201803
